FAERS Safety Report 7552252-7 (Version None)
Quarter: 2011Q2

REPORT INFORMATION
  Report Type: 
  Country: None (occurrence: None)
  Receive Date: 20110616
  Receipt Date: 20030623
  Transmission Date: 20111010
  Serious: Yes (Other)
  Sender: FDA-Public Use
  Company Number: PHHO2003CA06327

PATIENT
  Sex: Male

DRUGS (5)
  1. DIOVAN HCT [Suspect]
     Dosage: DIOVAN 160 MG + HCT
     Route: 048
     Dates: start: 20030301
  2. ASAPHEN [Concomitant]
     Dosage: UNKNOWN
  3. MONOCOR [Concomitant]
     Dosage: UNKNOWN
  4. LIPITOR [Concomitant]
     Dosage: UNKNOWN
  5. DIOVAN [Suspect]
     Dosage: 80 MG, QD
     Route: 048
     Dates: start: 20030301, end: 20030301

REACTIONS (2)
  - SILENT MYOCARDIAL INFARCTION [None]
  - CEREBROVASCULAR ACCIDENT [None]
